FAERS Safety Report 5338784-0 (Version None)
Quarter: 2007Q2

REPORT INFORMATION
  Report Type: 
  Country: None (occurrence: None)
  Receive Date: 20070322
  Receipt Date: 20060410
  Transmission Date: 20071010
  Serious: Yes (Other)
  Sender: FDA-Public Use
  Company Number: 200610839BCC

PATIENT
  Age: 69 Year
  Sex: Female
  Weight: 90.7194 kg

DRUGS (9)
  1. ALEVE (CAPLET) [Suspect]
     Indication: TENDON RUPTURE
     Dosage: 220 MG, BID, ORAL
     Route: 048
     Dates: start: 20051101, end: 20060220
  2. LOTREL [Concomitant]
  3. LIPITOR [Concomitant]
  4. PAXIL [Concomitant]
  5. GLYBURIDE [Concomitant]
  6. METFORMIN HCL [Concomitant]
  7. FLOVENT [Concomitant]
  8. MAXAIR [Concomitant]
  9. STORE BRAND ASPIRIN [Concomitant]

REACTIONS (2)
  - UNEVALUABLE EVENT [None]
  - URINARY INCONTINENCE [None]
